FAERS Safety Report 16715196 (Version 5)
Quarter: 2019Q4

REPORT INFORMATION
  Report Type: Report from Study
  Country: HR (occurrence: HR)
  Receive Date: 20190819
  Receipt Date: 20191021
  Transmission Date: 20200122
  Serious: Yes (Hospitalization)
  Sender: FDA-Public Use
  Company Number: HR-AMERICAN REGENT INC-2019001769

PATIENT
  Age: 83 Year
  Sex: Female
  Weight: 73 kg

DRUGS (16)
  1. EDEMID [Concomitant]
     Active Substance: FUROSEMIDE
     Indication: CARDIAC FAILURE ACUTE
     Dosage: 40 MILLIGRAM, 1 IN 1D
     Route: 042
     Dates: start: 20181124, end: 20181204
  2. EDEMID [Concomitant]
     Active Substance: FUROSEMIDE
     Indication: HYPERTENSION
     Dosage: 250 MILLIGRAM, 1 IN 1D
     Route: 048
     Dates: start: 2017
  3. GLIKVIDON [Concomitant]
     Indication: TYPE 2 DIABETES MELLITUS
     Dosage: 90 MILLIGRAM, 30 MG 3 IN 1D
     Route: 048
     Dates: start: 20181124
  4. LEVEMIR [Concomitant]
     Active Substance: INSULIN DETEMIR
     Indication: TYPE 2 DIABETES MELLITUS
     Dosage: 12 INTERNATIONAL UNIT,1 IN 1 D
     Route: 058
     Dates: start: 20181124
  5. NEBIVOLOL. [Concomitant]
     Active Substance: NEBIVOLOL
     Indication: ATRIAL FIBRILLATION
     Dosage: 5 MILLIGRAM, 1 IN 1 D
     Route: 048
     Dates: start: 2017
  6. ALLOPURINOL. [Concomitant]
     Active Substance: ALLOPURINOL
     Indication: CHRONIC KIDNEY DISEASE
     Dosage: 100 MILLIGRAM, 1 IN 1 D
     Route: 048
     Dates: start: 20181124
  7. FERINJECT [Suspect]
     Active Substance: FERRIC CARBOXYMALTOSE
     Indication: IRON DEFICIENCY
     Dosage: 10 MILLILITER (1 KIT)
     Dates: start: 20190111, end: 20190111
  8. KALINOR                            /00031402/ [Concomitant]
     Active Substance: POTASSIUM CHLORIDE
     Indication: PROPHYLAXIS
     Dosage: 1 GRAM, 1 IN 1D
     Route: 048
     Dates: start: 2017
  9. NAKLOFEN                           /00372302/ [Concomitant]
     Active Substance: DICLOFENAC SODIUM
     Indication: PRODUCT USED FOR UNKNOWN INDICATION
     Dosage: UNK, PRN AS REQUIRED
     Route: 065
  10. REGLAN [Concomitant]
     Active Substance: METOCLOPRAMIDE HYDROCHLORIDE
     Indication: PRODUCT USED FOR UNKNOWN INDICATION
     Dosage: UNK, PRN AS REQUIRED
     Route: 065
  11. FLUTICASONE. [Concomitant]
     Active Substance: FLUTICASONE
     Indication: PRODUCT USED FOR UNKNOWN INDICATION
     Dosage: 1000 UNKNOWN (500 UNKNOWN 2 IN 1D), QD
  12. OLMESARTAN [Concomitant]
     Active Substance: OLMESARTAN
     Indication: HYPERTENSION
     Dosage: 10 MILLIGRAM, 1 IN1D
     Route: 048
     Dates: start: 20181124
  13. FERINJECT [Suspect]
     Active Substance: FERRIC CARBOXYMALTOSE
     Indication: CARDIAC FAILURE ACUTE
     Dosage: 10 MILLILITER (2 KITS) TOTAL DOSE 20 ML
     Dates: start: 20181205, end: 20181205
  14. ZOTRAMID [Concomitant]
     Active Substance: ACETAMINOPHEN\TRAMADOL HYDROCHLORIDE
     Indication: PAIN PROPHYLAXIS
     Dosage: 37.5/325 MILLIGRAM (3 IN 1D)
     Route: 048
     Dates: start: 20181124
  15. MARTEFARIN [Concomitant]
     Active Substance: WARFARIN
     Indication: PRODUCT USED FOR UNKNOWN INDICATION
     Dosage: 1 TABLET INTERCHANGEABLY WITH 1/2 TABLET
     Route: 065
  16. HELEX [Concomitant]
     Active Substance: ALPRAZOLAM
     Indication: PRODUCT USED FOR UNKNOWN INDICATION
     Dosage: 0.75 MILLIGRAM, (0.25 MG 3 IN 1D)
     Route: 065

REACTIONS (1)
  - Cardiac failure chronic [Recovered/Resolved]

NARRATIVE: CASE EVENT DATE: 20190718
